FAERS Safety Report 8257620-6 (Version None)
Quarter: 2012Q2

REPORT INFORMATION
  Report Type: 
  Country: None (occurrence: None)
  Receive Date: 20120403
  Receipt Date: 20120326
  Transmission Date: 20120825
  Serious: Yes (Life-Threatening, Hospitalization)
  Sender: FDA-Public Use
  Company Number: NL-MEDIMMUNE-MEDI-0014114

PATIENT
  Sex: Male
  Weight: 6.25 kg

DRUGS (5)
  1. SYNAGIS [Suspect]
     Indication: HEART DISEASE CONGENITAL
     Route: 030
     Dates: start: 20110913, end: 20110913
  2. DIGOXIN [Concomitant]
  3. SYNAGIS [Suspect]
     Route: 030
     Dates: start: 20111107, end: 20111205
  4. SPIRONOLACTONE [Concomitant]
     Dates: end: 20111130
  5. HYDROCHLOROTHIAZIDE [Concomitant]
     Dates: end: 20111130

REACTIONS (6)
  - VIRAL INFECTION [None]
  - LYMPHADENOPATHY [None]
  - CRYING [None]
  - FLUID INTAKE REDUCED [None]
  - HYPOPHAGIA [None]
  - POST PROCEDURAL COMPLICATION [None]
